FAERS Safety Report 9466269 (Version 1)
Quarter: 2013Q3

REPORT INFORMATION
  Report Type: Spontaneous
  Country: US (occurrence: US)
  Receive Date: 20130820
  Receipt Date: 20130820
  Transmission Date: 20140515
  Serious: No
  Sender: FDA-Public Use
  Company Number: US-PFIZER INC-2013239743

PATIENT
  Age: 67 Year
  Sex: Male

DRUGS (1)
  1. LYRICA [Suspect]
     Indication: EPILEPSY
     Dosage: TWICE A DAY

REACTIONS (5)
  - Drug ineffective [Unknown]
  - Dysstasia [Unknown]
  - Myalgia [Unknown]
  - Increased appetite [Unknown]
  - Musculoskeletal stiffness [Unknown]
